FAERS Safety Report 17568991 (Version 1)
Quarter: 2020Q1

REPORT INFORMATION
  Report Type: Report from Study
  Country: DE (occurrence: DE)
  Receive Date: 20200321
  Receipt Date: 20200321
  Transmission Date: 20200409
  Serious: Yes (Other)
  Sender: FDA-Public Use
  Company Number: DE-TEVA-2020-DE-1209135

PATIENT
  Age: 43 Year
  Sex: Female
  Weight: 77 kg

DRUGS (5)
  1. CYCLOPHOSPHAMID [Suspect]
     Active Substance: CYCLOPHOSPHAMIDE
     Route: 065
  2. CARBOPLATIN. [Suspect]
     Active Substance: CARBOPLATIN
     Route: 065
  3. PACLITAXEL. [Suspect]
     Active Substance: PACLITAXEL
     Route: 065
  4. L-THYROXIN 75 [Concomitant]
     Active Substance: LEVOTHYROXINE
     Route: 065
     Dates: start: 2012
  5. EPIRUBICIN [Suspect]
     Active Substance: EPIRUBICIN
     Route: 065

REACTIONS (2)
  - Pulmonary embolism [Unknown]
  - Deep vein thrombosis [Unknown]

NARRATIVE: CASE EVENT DATE: 20190211
